FAERS Safety Report 19378951 (Version 2)
Quarter: 2023Q1

REPORT INFORMATION
  Report Type: Other
  Country: US (occurrence: None)
  Receive Date: 20210606
  Receipt Date: 20230201
  Transmission Date: 20230417
  Serious: Yes (Death)
  Sender: FDA-Public Use
  Company Number: US-ROCHE-2834626

PATIENT
  Age: 58 Year
  Sex: Female
  Weight: 81.6 kg

DRUGS (16)
  1. OCREVUS [Suspect]
     Active Substance: OCRELIZUMAB
     Indication: Multiple sclerosis
     Dosage: INFUSE 300 MG ON DAY 1 THEN INFUSE 300 MG ON DAY 14; ONGOING: NO
     Route: 065
     Dates: start: 20200717, end: 20200804
  2. BUSPAR [Concomitant]
     Active Substance: BUSPIRONE HYDROCHLORIDE
  3. LIORESAL [Concomitant]
     Active Substance: BACLOFEN
  4. DUONEB [Concomitant]
     Active Substance: ALBUTEROL SULFATE\IPRATROPIUM BROMIDE
  5. CRESTOR [Concomitant]
     Active Substance: ROSUVASTATIN CALCIUM
  6. LASIX [Concomitant]
     Active Substance: FUROSEMIDE
  7. NORVASC [Concomitant]
     Active Substance: AMLODIPINE BESYLATE
  8. PHENERGAN [Concomitant]
     Active Substance: PROMETHAZINE HYDROCHLORIDE
  9. NEURONTIN [Concomitant]
     Active Substance: GABAPENTIN
  10. EFFEXOR [Concomitant]
     Active Substance: VENLAFAXINE HYDROCHLORIDE
  11. MOBIC [Concomitant]
     Active Substance: MELOXICAM
  12. MYCOSTATIN [Concomitant]
     Active Substance: NYSTATIN
  13. XANAX [Concomitant]
     Active Substance: ALPRAZOLAM
  14. CATAPRES [Concomitant]
     Active Substance: CLONIDINE HYDROCHLORIDE
  15. AMBIEN [Concomitant]
     Active Substance: ZOLPIDEM TARTRATE
  16. DILAUDID [Concomitant]
     Active Substance: HYDROMORPHONE HYDROCHLORIDE

REACTIONS (1)
  - Death [Fatal]

NARRATIVE: CASE EVENT DATE: 20210312
